FAERS Safety Report 9516811 (Version 2)
Quarter: 2014Q1

REPORT INFORMATION
  Report Type: Spontaneous
  Country: US (occurrence: None)
  Receive Date: 20130305
  Receipt Date: 20140306
  Transmission Date: 20141002
  Serious: Yes (Other)
  Sender: FDA-Public Use
  Company Number: 163-21880-12120584

PATIENT
  Age: 58 Year
  Sex: Male

DRUGS (5)
  1. REVLIMID [Suspect]
     Indication: PLASMA CELL MYELOMA
     Dosage: 28 IN 28D
     Route: 048
     Dates: start: 2010
  2. VELCADE (BORTEZOMIB) [Concomitant]
     Indication: PRODUCT USED FOR UNKNOWN INDICATION
  3. ASA (ACETYLSALICYLIC ACID) [Concomitant]
  4. SIMACOR (SIMVASTATIN) [Concomitant]
  5. OXYCONTIN (OXYCODONE HYDROCHLORIDE) [Concomitant]

REACTIONS (2)
  - Neuropathy peripheral [None]
  - Transient ischaemic attack [None]
